FAERS Safety Report 17102187 (Version 1)
Quarter: 2019Q4

REPORT INFORMATION
  Report Type: Report from Study
  Country: CN (occurrence: CN)
  Receive Date: 20191202
  Receipt Date: 20191202
  Transmission Date: 20200122
  Serious: Yes (Other)
  Sender: FDA-Public Use
  Company Number: CN-JNJFOC-20191133674

PATIENT
  Age: 5 Year
  Sex: Male

DRUGS (1)
  1. REMICADE [Suspect]
     Active Substance: INFLIXIMAB
     Indication: CROHN^S DISEASE
     Route: 042
     Dates: start: 20190618

REACTIONS (3)
  - Product use issue [Unknown]
  - Off label use [Unknown]
  - Femur fracture [Unknown]

NARRATIVE: CASE EVENT DATE: 20190618
